FAERS Safety Report 4502244-7 (Version None)
Quarter: 2004Q4

REPORT INFORMATION
  Report Type: 
  Country: None (occurrence: None)
  Receive Date: 20041116
  Receipt Date: 20041108
  Transmission Date: 20050328
  Serious: Yes (Hospitalization)
  Sender: FDA-Public Use
  Company Number: JP-BRISTOL-MYERS SQUIBB COMPANY-12763561

PATIENT
  Sex: Female

DRUGS (3)
  1. IFOMIDE [Suspect]
     Indication: CERVIX CARCINOMA
  2. UROMITEXAN [Suspect]
  3. PEPLEO [Suspect]
     Indication: CERVIX CARCINOMA

REACTIONS (1)
  - BLOOD PRESSURE SYSTOLIC INCREASED [None]
